FAERS Safety Report 13188290 (Version 1)
Quarter: 2017Q1

REPORT INFORMATION
  Report Type: Spontaneous
  Country: US (occurrence: US)
  Receive Date: 20170206
  Receipt Date: 20170206
  Transmission Date: 20170428
  Serious: Yes (Other)
  Sender: FDA-Public Use
  Company Number: US-DRREDDYS-USA/USA/17/0086856

PATIENT
  Age: 34 Year
  Sex: Male

DRUGS (1)
  1. MINOCYCLINE HYDROCHLORIDE. [Suspect]
     Active Substance: MINOCYCLINE HYDROCHLORIDE
     Indication: ACNE
     Route: 065

REACTIONS (7)
  - Aortic valve incompetence [Unknown]
  - Pigmentation disorder [Unknown]
  - Coagulopathy [Unknown]
  - Liver transplant rejection [Unknown]
  - Arteriosclerosis [Unknown]
  - Aortic aneurysm [Unknown]
  - Hepatic function abnormal [Unknown]
